FAERS Safety Report 15319071 (Version 2)
Quarter: 2018Q4

REPORT INFORMATION
  Report Type: Spontaneous
  Country: US (occurrence: US)
  Receive Date: 20180826
  Receipt Date: 20181004
  Transmission Date: 20190204
  Serious: Yes (Hospitalization, Other)
  Sender: FDA-Public Use
  Company Number: US-PRINSTON PHARMACEUTICAL INC.-2018PRN00922

PATIENT
  Age: 58 Year
  Sex: Male
  Weight: 72.56 kg

DRUGS (9)
  1. UNSPECIFIED MUSCLE RELAXERS [Concomitant]
     Dosage: UNK, AS NEEDED
  2. ALBUTEROL. [Concomitant]
     Active Substance: ALBUTEROL
     Indication: LUNG DISORDER
     Dosage: UNK, 1X/MONTH
  3. UNSPECIFIED WATER PILL [Suspect]
     Active Substance: UNSPECIFIED INGREDIENT
  4. UNSPECIFIED NEBULIZED MEDICATION [Concomitant]
  5. VALSARTAN. [Suspect]
     Active Substance: VALSARTAN
     Indication: HYPERTENSION
     Dosage: 320 MG, 1X/DAY
     Route: 048
     Dates: start: 201701, end: 201805
  6. LIDOCAINE PATCHES [Concomitant]
     Active Substance: LIDOCAINE
     Dosage: 5%
  7. UNSPECIFIED CHEMOTHERAPY [Suspect]
     Active Substance: UNSPECIFIED INGREDIENT
  8. OMEPRAZOLE. [Concomitant]
     Active Substance: OMEPRAZOLE
     Dosage: 20 MG
  9. VALIUM [Concomitant]
     Active Substance: DIAZEPAM
     Dosage: 5 MG, 2X/DAY

REACTIONS (16)
  - Weight decreased [Unknown]
  - Dyspnoea [Unknown]
  - Visual impairment [Recovered/Resolved]
  - Leukaemia [Not Recovered/Not Resolved]
  - Apparent death [Recovered/Resolved]
  - Pulmonary congestion [Unknown]
  - Respiratory failure [Unknown]
  - Hepatitis [Not Recovered/Not Resolved]
  - Malaise [Unknown]
  - Renal failure [Recovered/Resolved]
  - Gait disturbance [Unknown]
  - Anorectal discomfort [Unknown]
  - Blood sodium decreased [Unknown]
  - Odynophagia [Unknown]
  - Sepsis [Unknown]
  - Platelet count decreased [Unknown]

NARRATIVE: CASE EVENT DATE: 201801
